FAERS Safety Report 5269410-7 (Version None)
Quarter: 2007Q1

REPORT INFORMATION
  Report Type: 
  Country: None (occurrence: None)
  Receive Date: 20070316
  Receipt Date: 20070316
  Transmission Date: 20070707
  Serious: Yes (Life-Threatening, Disabling)
  Sender: FDA-Public Use
  Company Number: None

PATIENT
  Sex: Male
  Weight: 131.5431 kg

DRUGS (7)
  1. TAXOL [Suspect]
     Indication: MYOCARDIAL INFARCTION
     Dates: start: 20031101
  2. TAXOL [Suspect]
     Dates: start: 20041201
  3. . [Concomitant]
  4. . [Concomitant]
  5. . [Concomitant]
  6. . [Concomitant]
  7. . [Concomitant]

REACTIONS (2)
  - POST PROCEDURAL MYOCARDIAL INFARCTION [None]
  - POSTOPERATIVE THROMBOSIS [None]
